FAERS Safety Report 4940002-X (Version None)
Quarter: 2006Q1

REPORT INFORMATION
  Report Type: 
  Country: None (occurrence: None)
  Receive Date: 20060307
  Receipt Date: 20060227
  Transmission Date: 20060701
  Serious: Yes (Other)
  Sender: FDA-Public Use
  Company Number: SUS1-2006-00181

PATIENT
  Age: 7 Year
  Sex: Female
  Weight: 30.8 kg

DRUGS (1)
  1. CARBATROL [Suspect]
     Indication: EPILEPSY
     Dosage: 100 MG  AM, 200 MG IN PM, UNK
     Dates: start: 20040930, end: 20041019

REACTIONS (5)
  - DRUG HYPERSENSITIVITY [None]
  - STOMATITIS [None]
  - THINKING ABNORMAL [None]
  - TOURETTE'S DISORDER [None]
  - VIRAL INFECTION [None]
